FAERS Safety Report 6329122-5 (Version None)
Quarter: 2009Q3

REPORT INFORMATION
  Report Type: 
  Country: None (occurrence: None)
  Receive Date: 20090826
  Receipt Date: 20090813
  Transmission Date: 20100115
  Serious: Yes (Other)
  Sender: FDA-Public Use
  Company Number: US-ELI_LILLY_AND_COMPANY-US200906005238

PATIENT
  Age: 51 Year
  Sex: Female

DRUGS (16)
  1. CYMBALTA [Suspect]
     Dosage: 120 MG, UNK
     Dates: start: 20060206, end: 20060201
  2. CYMBALTA [Suspect]
     Dosage: 60 MG, UNK
     Dates: start: 20060201, end: 20080331
  3. CYMBALTA [Suspect]
     Dosage: 90 MG, UNK
     Dates: start: 20080331, end: 20080411
  4. CYMBALTA [Suspect]
     Dosage: 120 MG, UNK
     Dates: start: 20080411, end: 20090622
  5. JANUVIA [Concomitant]
  6. NEXIUM [Concomitant]
  7. PROVIGIL [Concomitant]
  8. HUMALOG [Concomitant]
  9. LOVENOX [Concomitant]
  10. GLYBURIDE [Concomitant]
  11. METFORMIN HCL [Concomitant]
  12. METOPROLOL [Concomitant]
  13. FIBERCON [Concomitant]
  14. LANTUS [Concomitant]
  15. LIPITOR [Concomitant]
  16. NIOPAM [Concomitant]

REACTIONS (1)
  - HEPATIC CIRRHOSIS [None]
